FAERS Safety Report 23067201 (Version 2)
Quarter: 2023Q4

REPORT INFORMATION
  Report Type: Report from Study
  Country: CA (occurrence: CA)
  Receive Date: 20231016
  Receipt Date: 20231120
  Transmission Date: 20240110
  Serious: Yes (Death, Hospitalization)
  Sender: FDA-Public Use
  Company Number: CA-Vifor (International) Inc.-VIT-2023-07510

PATIENT
  Age: 73 Year
  Sex: Female

DRUGS (1)
  1. AVACOPAN [Suspect]
     Active Substance: AVACOPAN
     Indication: Anti-neutrophil cytoplasmic antibody positive vasculitis
     Dosage: 30 MILLIGRAM
     Route: 065
     Dates: start: 20230110, end: 202305

REACTIONS (2)
  - Respiratory failure [Fatal]
  - Viral infection [Recovering/Resolving]

NARRATIVE: CASE EVENT DATE: 20230503
